FAERS Safety Report 18633976 (Version 1)
Quarter: 2020Q4

REPORT INFORMATION
  Report Type: Report from Study
  Country: US (occurrence: US)
  Receive Date: 20201218
  Receipt Date: 20201218
  Transmission Date: 20210114
  Serious: No
  Sender: FDA-Public Use
  Company Number: US-REGENERON PHARMACEUTICALS, INC.-2020-15822

PATIENT

DRUGS (4)
  1. EYLEA [Suspect]
     Active Substance: AFLIBERCEPT
     Dosage: IN THE RIGHT EYE, EVERY 4 WEEKS (Q4W)
  2. EYLEA [Suspect]
     Active Substance: AFLIBERCEPT
     Indication: NEOVASCULAR AGE-RELATED MACULAR DEGENERATION
     Dosage: IN THE RIGHT EYE, EVERY 4 WEEKS (Q4W)
     Dates: start: 2015
  3. EYLEA [Suspect]
     Active Substance: AFLIBERCEPT
     Dosage: IN THE LEFT EYE
     Dates: start: 2019
  4. EYLEA [Suspect]
     Active Substance: AFLIBERCEPT
     Dosage: IN THE RIGHT EYE, EVERY 8 WEEKS (Q8W)

REACTIONS (1)
  - Drug ineffective [Unknown]
